FAERS Safety Report 11603592 (Version 2)
Quarter: 2015Q4

REPORT INFORMATION
  Report Type: Spontaneous
  Country: SE (occurrence: SE)
  Receive Date: 20151007
  Receipt Date: 20151119
  Transmission Date: 20160304
  Serious: Yes (Other)
  Sender: FDA-Public Use
  Company Number: SE-ASTRAZENECA-2015SE94342

PATIENT
  Age: 50 Year
  Sex: Male

DRUGS (5)
  1. EKLIRA GENUAIR [Suspect]
     Active Substance: ACLIDINIUM BROMIDE
     Indication: ASTHMA
     Dosage: 1 INHALATION 2 TIMES PER DAY
     Route: 055
     Dates: start: 20140822, end: 20140911
  2. ATROVENT [Concomitant]
     Active Substance: IPRATROPIUM BROMIDE
  3. SYMBICORT [Concomitant]
     Active Substance: BUDESONIDE\FORMOTEROL FUMARATE DIHYDRATE
  4. NASONEX [Concomitant]
     Active Substance: MOMETASONE FUROATE
  5. ATORVASTATIN [Concomitant]
     Active Substance: ATORVASTATIN

REACTIONS (4)
  - Crohn^s disease [Recovered/Resolved]
  - Erythema nodosum [Recovered/Resolved]
  - Osteoarthritis [Recovered/Resolved]
  - Product use issue [Unknown]

NARRATIVE: CASE EVENT DATE: 20140911
